FAERS Safety Report 13865901 (Version 1)
Quarter: 2017Q3

REPORT INFORMATION
  Report Type: Spontaneous
  Country: US (occurrence: US)
  Receive Date: 20170814
  Receipt Date: 20170814
  Transmission Date: 20171127
  Serious: Yes (Other)
  Sender: FDA-Public Use
  Company Number: US-ROCHE-658307

PATIENT
  Age: 15 Year
  Sex: Female
  Weight: 59 kg

DRUGS (3)
  1. TYLENOL [Concomitant]
     Active Substance: ACETAMINOPHEN
     Indication: PYREXIA
     Route: 048
     Dates: start: 20090918, end: 20090921
  2. TAMIFLU [Suspect]
     Active Substance: OSELTAMIVIR PHOSPHATE
     Indication: H1N1 INFLUENZA
     Route: 048
     Dates: start: 20090918, end: 20090920
  3. SYNTHROID [Concomitant]
     Active Substance: LEVOTHYROXINE SODIUM
     Route: 065

REACTIONS (1)
  - Erythema multiforme [Recovered/Resolved]

NARRATIVE: CASE EVENT DATE: 20090920
